FAERS Safety Report 4505982-5 (Version None)
Quarter: 2004Q4

REPORT INFORMATION
  Report Type: 
  Country: None (occurrence: None)
  Receive Date: 20041025
  Receipt Date: 20031008
  Transmission Date: 20050328
  Serious: Yes (Other)
  Sender: FDA-Public Use
  Company Number: US-JNJFOC-20031000164

PATIENT
  Age: 61 Year
  Sex: Female

DRUGS (5)
  1. REMICADE [Suspect]
     Indication: RHEUMATOID ARTHRITIS
     Dosage: 6 VIALS
     Dates: start: 20030930
  2. REMICADE [Suspect]
     Dosage: 600 MG, INTRAVENOUS
     Route: 042
     Dates: start: 20030725
  3. METHOTREXATE [Concomitant]
  4. CELEBREX [Concomitant]
  5. PLAQUENIL [Concomitant]

REACTIONS (4)
  - ARRHYTHMIA [None]
  - BLOOD PRESSURE INCREASED [None]
  - CHEST PAIN [None]
  - DYSPNOEA [None]
